FAERS Safety Report 7897582-4 (Version None)
Quarter: 2011Q4

REPORT INFORMATION
  Report Type: 
  Country: None (occurrence: None)
  Receive Date: 20111107
  Receipt Date: 20111102
  Transmission Date: 20120403
  Serious: Yes (Life-Threatening, Hospitalization, Other)
  Sender: FDA-Public Use
  Company Number: JP-PFIZER INC-9927234

PATIENT
  Age: 34 Year
  Sex: Female
  Weight: 54 kg

DRUGS (3)
  1. PARAMETHASONE [Concomitant]
     Indication: PRURIGO
     Dosage: DAILY
     Dates: start: 19990328, end: 19990331
  2. ATARAX [Suspect]
     Indication: URTICARIA
     Dosage: 75 MG, 1X/DAY
     Route: 048
     Dates: start: 19990328, end: 19990401
  3. ATARAX [Suspect]
     Indication: PRURIGO

REACTIONS (9)
  - SYNCOPE [None]
  - VERTIGO [None]
  - GENE MUTATION IDENTIFICATION TEST [None]
  - VENTRICULAR ARRHYTHMIA [None]
  - PREGNANCY [None]
  - TORSADE DE POINTES [None]
  - PALPITATIONS [None]
  - ELECTROCARDIOGRAM QT PROLONGED [None]
  - TINNITUS [None]
